FAERS Safety Report 10896380 (Version 1)
Quarter: 2015Q1

REPORT INFORMATION
  Report Type: Spontaneous
  Country: US (occurrence: None)
  Receive Date: 20150302
  Receipt Date: 20150302
  Transmission Date: 20150721
  Serious: Yes (Disabling)
  Sender: FDA-Public Use
  Company Number: None

PATIENT
  Age: 44 Year
  Sex: Female

DRUGS (1)
  1. REBOOST DECONGESTION [Suspect]
     Active Substance: CALCIUM SULFIDE\EUPHORBIA RESINIFERA RESIN\GOLDENSEAL\LUFFA OPERCULATA FRUIT\POTASSIUM DICHROMATE\PULSATILLA VULGARIS\SILVER NITRATE\SODIUM CARBONATE
     Indication: SINUS CONGESTION
     Dates: start: 20150224, end: 20150226

REACTIONS (4)
  - Product quality issue [None]
  - Instillation site pain [None]
  - Epistaxis [None]
  - Product substitution issue [None]

NARRATIVE: CASE EVENT DATE: 20150224
